FAERS Safety Report 13818388 (Version 1)
Quarter: 2017Q3

REPORT INFORMATION
  Report Type: Spontaneous
  Country: US (occurrence: US)
  Receive Date: 20170731
  Receipt Date: 20170731
  Transmission Date: 20171127
  Serious: Yes (Hospitalization)
  Sender: FDA-Public Use
  Company Number: US-ROCHE-606552

PATIENT
  Age: 71 Year
  Sex: Female
  Weight: 57.6 kg

DRUGS (3)
  1. ZEGERID [Concomitant]
     Active Substance: OMEPRAZOLE\SODIUM BICARBONATE
     Indication: GASTROOESOPHAGEAL REFLUX DISEASE
     Dosage: DRUG REPORTED: ZEGRID
     Route: 048
  2. BONIVA [Suspect]
     Active Substance: IBANDRONATE SODIUM
     Indication: OSTEOPOROSIS
     Dosage: STRENGTH: 3 MG/ 3ML
     Route: 042
     Dates: start: 20081217, end: 20081217
  3. ASACOL [Concomitant]
     Active Substance: MESALAMINE
     Indication: COLITIS
     Dosage: OTHER INDICATION: CROHN^S DISEASE.
     Route: 048

REACTIONS (5)
  - Induration [Not Recovered/Not Resolved]
  - Injection site extravasation [Unknown]
  - Grip strength decreased [Not Recovered/Not Resolved]
  - Hyperaesthesia [Not Recovered/Not Resolved]
  - Cellulitis [Unknown]

NARRATIVE: CASE EVENT DATE: 20081217
